FAERS Safety Report 9774364 (Version 1)
Quarter: 2013Q4

REPORT INFORMATION
  Report Type: Spontaneous
  Country: US (occurrence: None)
  Receive Date: 20131219
  Receipt Date: 20131219
  Transmission Date: 20140711
  Serious: Yes (Other)
  Sender: FDA-Public Use
  Company Number: None

PATIENT
  Sex: Female

DRUGS (3)
  1. ANASTROZOLE, 1 MG [Suspect]
     Indication: BREAST CANCER
     Route: 048
  2. MVI TABLET [Concomitant]
  3. NEXIUM [Concomitant]

REACTIONS (1)
  - Rash [None]
